FAERS Safety Report 4975152-5 (Version None)
Quarter: 2006Q2

REPORT INFORMATION
  Report Type: 
  Country: None (occurrence: None)
  Receive Date: 20060418
  Receipt Date: 20060407
  Transmission Date: 20061013
  Serious: Yes (Other)
  Sender: FDA-Public Use
  Company Number: DE-JNJFOC-20060403664

PATIENT
  Sex: Female
  Weight: 21 kg

DRUGS (6)
  1. TOPAMAX [Suspect]
     Indication: EPILEPSY
     Route: 048
  2. VALPROIC ACID [Concomitant]
     Indication: EPILEPSY
     Route: 048
  3. CLOBAZAM [Concomitant]
     Indication: EPILEPSY
  4. BACLOFEN [Concomitant]
     Route: 037
  5. SAB SIMPLEX [Concomitant]
  6. LACTULOSE [Concomitant]

REACTIONS (4)
  - APNOEA [None]
  - BRAIN STEM SYNDROME [None]
  - CARDIAC ARREST [None]
  - LARYNGOSPASM [None]
